FAERS Safety Report 23267557 (Version 1)
Quarter: 2023Q4

REPORT INFORMATION
  Report Type: Spontaneous
  Country: US (occurrence: None)
  Receive Date: 20231205
  Receipt Date: 20231205
  Transmission Date: 20240109
  Serious: Yes (Other)
  Sender: FDA-Public Use
  Company Number: None

PATIENT
  Age: 66 Year
  Sex: Female
  Weight: 56.25 kg

DRUGS (2)
  1. CLENPIQ [Suspect]
     Active Substance: ANHYDROUS CITRIC ACID\MAGNESIUM OXIDE\SODIUM PICOSULFATE
     Indication: Colonoscopy
     Dosage: OTHER QUANTITY : 2 OUNCE(S); @ 6 PM?OTHER FREQUENCY : 6 PM;?
     Route: 048
     Dates: start: 20231204, end: 20231204
  2. LEVOTHYROXINE SODIUM [Concomitant]

REACTIONS (6)
  - Dizziness [None]
  - Disorientation [None]
  - Fall [None]
  - Loss of consciousness [None]
  - Headache [None]
  - Swelling [None]

NARRATIVE: CASE EVENT DATE: 20231205
